FAERS Safety Report 8496280-6 (Version None)
Quarter: 2012Q3

REPORT INFORMATION
  Report Type: 
  Country: None (occurrence: None)
  Receive Date: 20120709
  Receipt Date: 20120703
  Transmission Date: 20120928
  Serious: Yes (Hospitalization, Other)
  Sender: FDA-Public Use
  Company Number: US-PFIZER INC-2012159809

PATIENT
  Sex: Female
  Weight: 72.562 kg

DRUGS (4)
  1. LUPRON DEPOT [Suspect]
     Indication: ENDOMETRIOSIS
     Dosage: 3.75 MG,1 IN 1 M
     Dates: start: 20120515
  2. OBETROL [Concomitant]
     Indication: PRODUCT USED FOR UNKNOWN INDICATION
     Dosage: UNK
  3. VENLAFAXINE HYDROCHLORIDE [Concomitant]
     Indication: PRODUCT USED FOR UNKNOWN INDICATION
     Dosage: UNK
  4. IBUPROFEN (ADVIL) [Suspect]
     Indication: ENDOMETRIOSIS
     Dosage: UNK, EVERY FEW HOURS

REACTIONS (14)
  - BLOOD PRESSURE DECREASED [None]
  - HAEMATOCHEZIA [None]
  - HAEMORRHAGE [None]
  - HAEMOGLOBIN DECREASED [None]
  - SHOCK HAEMORRHAGIC [None]
  - SYNCOPE [None]
  - GASTRIC ULCER [None]
  - ASTHENIA [None]
  - THROMBOSIS [None]
  - ABDOMINAL PAIN UPPER [None]
  - HEAD INJURY [None]
  - HYPOAESTHESIA [None]
  - PANCREATITIS [None]
  - HAEMATEMESIS [None]
